FAERS Safety Report 4870256-X (Version None)
Quarter: 2006Q1

REPORT INFORMATION
  Report Type: 
  Country: None (occurrence: None)
  Receive Date: 20060102
  Receipt Date: 20051221
  Transmission Date: 20060701
  Serious: Yes (Other)
  Sender: FDA-Public Use
  Company Number: GB-SANOFI-SYNTHELABO-A01200508983

PATIENT
  Age: 69 Year
  Sex: Male

DRUGS (1)
  1. ALFUZOSIN [Suspect]
     Indication: BENIGN PROSTATIC HYPERPLASIA
     Route: 048
     Dates: start: 20050301

REACTIONS (2)
  - CATARACT OPERATION COMPLICATION [None]
  - IRIS DISORDER [None]
